FAERS Safety Report 16868738 (Version 1)
Quarter: 2019Q3

REPORT INFORMATION
  Report Type: Report from Study
  Country: None (occurrence: US)
  Receive Date: 20190930
  Receipt Date: 20190930
  Transmission Date: 20191005
  Serious: Yes (Other)
  Sender: FDA-Public Use
  Company Number: US-ABBVIE-19K-163-2937262-00

PATIENT
  Sex: Female

DRUGS (1)
  1. CREON [Suspect]
     Active Substance: PANCRELIPASE AMYLASE\PANCRELIPASE LIPASE\PANCRELIPASE PROTEASE
     Indication: PRODUCT USED FOR UNKNOWN INDICATION
     Route: 048

REACTIONS (6)
  - Coronary artery bypass [Unknown]
  - Faeces discoloured [Unknown]
  - Fatigue [Unknown]
  - Polyp [Unknown]
  - Dyspnoea exertional [Unknown]
  - Dizziness [Unknown]

NARRATIVE: CASE EVENT DATE: 2014
